FAERS Safety Report 9899050 (Version 1)
Quarter: 2014Q1

REPORT INFORMATION
  Report Type: Spontaneous
  Country: DK (occurrence: CA)
  Receive Date: 20140214
  Receipt Date: 20140214
  Transmission Date: 20141002
  Serious: Yes (Hospitalization, Other)
  Sender: FDA-Public Use
  Company Number: CA-FRI-1000054197

PATIENT
  Age: 84 Year
  Sex: Male
  Weight: 79 kg

DRUGS (6)
  1. ESCITALOPRAM [Suspect]
     Dosage: 20 MG
  2. AVAPRO [Suspect]
     Dosage: 300 MG
  3. INVESTIGATIONAL PRODUCT [Suspect]
     Dosage: 300 MG
     Route: 048
  4. INVESTIGATIONAL PRODUCT [Suspect]
     Dosage: 450 MG
     Route: 048
  5. ASPIRIN [Concomitant]
  6. HYDROCHLOROTHIAZIDE [Concomitant]

REACTIONS (5)
  - Alanine aminotransferase increased [Recovered/Resolved]
  - Blood alkaline phosphatase increased [Recovered/Resolved]
  - Blood bilirubin increased [Recovered/Resolved]
  - Gamma-glutamyltransferase abnormal [Recovered/Resolved]
  - Hepatitis acute [Recovered/Resolved]
